FAERS Safety Report 9844045 (Version 1)
Quarter: 2014Q1

REPORT INFORMATION
  Report Type: Spontaneous
  Country: IT (occurrence: IT)
  Receive Date: 20140126
  Receipt Date: 20140126
  Transmission Date: 20141002
  Serious: Yes (Hospitalization)
  Sender: FDA-Public Use
  Company Number: IT-BRISTOL-MYERS SQUIBB COMPANY-20042404

PATIENT
  Age: 89 Year
  Sex: Female

DRUGS (2)
  1. COUMADIN TABS 5 MG [Suspect]
     Indication: ATRIAL FIBRILLATION
     Dosage: 1 DF = 1 UNIT?DRUG INTERRUPTED ON 27NOV2013
     Route: 048
     Dates: start: 20130101
  2. LASIX [Concomitant]
     Dosage: TABS
     Route: 048

REACTIONS (1)
  - Oedema peripheral [Unknown]
